FAERS Safety Report 19889443 (Version 6)
Quarter: 2023Q4

REPORT INFORMATION
  Report Type: Spontaneous
  Country: US (occurrence: US)
  Receive Date: 20210927
  Receipt Date: 20231020
  Transmission Date: 20240110
  Serious: Yes (Other)
  Sender: FDA-Public Use
  Company Number: US-PFIZER INC-2018454788

PATIENT
  Age: 57 Year
  Sex: Female
  Weight: 76.2 kg

DRUGS (1)
  1. PROCARDIA XL [Interacting]
     Active Substance: NIFEDIPINE
     Indication: Hypertension
     Dosage: 1 DF, TWICE A DAY (ONE 30 MG TABLET 2 TIMES A DAY)
     Route: 048
     Dates: start: 2014

REACTIONS (3)
  - Parkinson^s disease [Unknown]
  - Off label use [Unknown]
  - Drug interaction [Unknown]

NARRATIVE: CASE EVENT DATE: 20140101
